FAERS Safety Report 4582993-5 (Version None)
Quarter: 2005Q1

REPORT INFORMATION
  Report Type: 
  Country: None (occurrence: None)
  Receive Date: 20050125
  Receipt Date: 20041014
  Transmission Date: 20050727
  Serious: No
  Sender: FDA-Public Use
  Company Number: USA040979502

PATIENT
  Age: 74 Year
  Sex: Female

DRUGS (12)
  1. FORTEO [Suspect]
     Indication: MULTIPLE FRACTURES
     Dates: start: 20040701
  2. FORTEO [Suspect]
     Indication: OSTEOPOROSIS
     Dates: start: 20040701
  3. BUMETANIDE [Concomitant]
  4. PRILOSEC (OMEPRAZOLE RATIOPHARM) [Concomitant]
  5. ALLEGRA-D [Concomitant]
  6. HYDROCODONE [Concomitant]
  7. VITAMIN C [Concomitant]
  8. FOSAMAX [Concomitant]
  9. CELEBREX [Concomitant]
  10. AMITRIPTYLINE [Concomitant]
  11. NEURONTIN (GABAPENTIN PFIZER) [Concomitant]
  12. CYCLOBENZAPRINE HCL [Concomitant]

REACTIONS (6)
  - CONDITION AGGRAVATED [None]
  - INJECTION SITE ERYTHEMA [None]
  - INJECTION SITE HAEMORRHAGE [None]
  - PAIN [None]
  - SKIN DISORDER [None]
  - SURGERY [None]
